FAERS Safety Report 6107229-5 (Version None)
Quarter: 2009Q1

REPORT INFORMATION
  Report Type: 
  Country: None (occurrence: None)
  Receive Date: 20090305
  Receipt Date: 20090305
  Transmission Date: 20090719
  Serious: Yes (Other)
  Sender: FDA-Public Use
  Company Number: None

PATIENT

DRUGS (4)
  1. PROVENTIL-HFA [Suspect]
     Indication: ASTHMA
     Dosage: 90 MCG EVERY 4 HOURS PRN INHAL
     Route: 055
     Dates: start: 20090101, end: 20090304
  2. PROVENTIL-HFA [Suspect]
     Indication: DYSPNOEA
     Dosage: 90 MCG EVERY 4 HOURS PRN INHAL
     Route: 055
     Dates: start: 20090101, end: 20090304
  3. PROAIR HFA [Suspect]
     Indication: ASTHMA
     Dosage: 90MCG  EVERY 4 HOURS PRN INHAL
     Route: 055
  4. PROAIR HFA [Suspect]
     Indication: DYSPNOEA
     Dosage: 90MCG  EVERY 4 HOURS PRN INHAL
     Route: 055

REACTIONS (2)
  - DRUG INEFFECTIVE [None]
  - THERAPEUTIC RESPONSE UNEXPECTED WITH DRUG SUBSTITUTION [None]
